FAERS Safety Report 23127231 (Version 8)
Quarter: 2023Q4

REPORT INFORMATION
  Report Type: Report from Study
  Country: NL (occurrence: NL)
  Receive Date: 20231031
  Receipt Date: 20231222
  Transmission Date: 20240110
  Serious: Yes (Other)
  Sender: FDA-Public Use
  Company Number: NL-ABBVIE-5450354

PATIENT
  Age: 76 Year
  Sex: Male

DRUGS (17)
  1. CARBIDOPA\LEVODOPA [Suspect]
     Active Substance: CARBIDOPA\LEVODOPA
     Indication: Parkinson^s disease
     Dosage: MD 4.0 ML; CD 3.4 ML/H; ED 2.0 ML?REMAINS AT 16 HOURS
     Route: 050
     Dates: start: 20230914, end: 20230921
  2. CARBIDOPA\LEVODOPA [Suspect]
     Active Substance: CARBIDOPA\LEVODOPA
     Dosage: MD: 5.2 ML, CD: 3.8 ML/H, ED: 2.0 ML, CND: 2.3ML/H, END: 2.0ML?DURATION TEXT: REMAINS AT 24 HOURS
     Route: 050
     Dates: start: 20231124, end: 20231214
  3. CARBIDOPA\LEVODOPA [Suspect]
     Active Substance: CARBIDOPA\LEVODOPA
     Dosage: MD 4.0 ML; CD 3.1 ML/H; ED 2.0 ML?REMAINS AT 16 HOURS
     Route: 050
     Dates: start: 20230913, end: 20230914
  4. CARBIDOPA\LEVODOPA [Suspect]
     Active Substance: CARBIDOPA\LEVODOPA
     Dosage: MD 4.0 ML; CD 3.1 ML/H; ED 1.0 ML?DURATION TEXT: REMAINS AT 16 HOURS.
     Route: 050
     Dates: start: 20230912, end: 20230913
  5. CARBIDOPA\LEVODOPA [Suspect]
     Active Substance: CARBIDOPA\LEVODOPA
     Dosage: MD 7.0 ML; CD 3.4 ML/H; ED 2.0 ML?REMAINS AT 16 HOURS
     Route: 050
     Dates: start: 20230921, end: 20231018
  6. CARBIDOPA\LEVODOPA [Suspect]
     Active Substance: CARBIDOPA\LEVODOPA
     Dosage: MD:7.0ML; CD:3.6ML/H; ED:2.0ML;?REMAINS AT 16 HOURS.
     Route: 050
     Dates: start: 20231018, end: 20231018
  7. CARBIDOPA\LEVODOPA [Suspect]
     Active Substance: CARBIDOPA\LEVODOPA
     Dosage: MD: 5.2 ML, CD: 3.6 ML/H, ED: 2.0 ML, CND: 1.8 ML/H, END: 2.0ML?DURATION TEXT: REMAINS AT 24 HOURS
     Route: 050
     Dates: start: 20231109, end: 20231117
  8. CARBIDOPA\LEVODOPA [Suspect]
     Active Substance: CARBIDOPA\LEVODOPA
     Dosage: MD: 5.2 ML, CD: 4.0 ML/H, ED: 2.0 ML, CND: 2.3ML/H, END: 2.0ML?DURATION TEXT: REMAINS AT 24 HOURS
     Route: 050
     Dates: start: 20231214
  9. CARBIDOPA\LEVODOPA [Suspect]
     Active Substance: CARBIDOPA\LEVODOPA
     Dosage: DURATION TEXT: REMAINS AT 16 HOURS.
     Route: 050
     Dates: start: 2023, end: 2023
  10. CARBIDOPA\LEVODOPA [Suspect]
     Active Substance: CARBIDOPA\LEVODOPA
     Dosage: MD: 5.2 ML, CD: 3.6 ML/H, ED: 2.0 ML, CND: 1.8 ML/H, END: 2.0ML?DURATION TEXT: REMAINS AT 16 HOURS.
     Route: 050
     Dates: start: 2023
  11. CARBIDOPA\LEVODOPA [Suspect]
     Active Substance: CARBIDOPA\LEVODOPA
     Dosage: DURATION TEXT: REMAINS AT 16 HOURS.
     Route: 050
     Dates: start: 20230912
  12. CARBIDOPA\LEVODOPA [Concomitant]
     Active Substance: CARBIDOPA\LEVODOPA
     Indication: Parkinson^s disease
     Dosage: FREQUENCY TEXT: 1-2-2-2-2 AT 8-11-14-17-20
     Route: 048
  13. CARBIDOPA\LEVODOPA [Concomitant]
     Active Substance: CARBIDOPA\LEVODOPA
     Indication: Parkinson^s disease
     Dosage: RET?FREQUENCY TEXT: AT 23:00
     Route: 048
  14. BENSERAZIDE HYDROCHLORIDE\LEVODOPA [Concomitant]
     Active Substance: BENSERAZIDE HYDROCHLORIDE\LEVODOPA
     Indication: Parkinson^s disease
     Dosage: FREQUENCY TEXT: 1 AT 6:00, 1 AT 8:00
     Route: 048
  15. NEUPRO [Concomitant]
     Active Substance: ROTIGOTINE
     Indication: Parkinson^s disease
     Dosage: FREQUENCY TEXT: 1 AT 20.00
     Route: 062
  16. LEVODOPA [Concomitant]
     Active Substance: LEVODOPA
     Indication: Product used for unknown indication
     Dosage: LAST ADMIN DATE 2023
     Route: 065
     Dates: start: 20231018
  17. LEVODOPA/CARBIDOPA PCH RETARD [Concomitant]
     Indication: Parkinson^s disease
     Dosage: FREQUENCY TEXT: AT 23:00?FORM STRENGTH: 125 MILLIGRAM?FREQUENCY TEXT: FOR THE NIGHT
     Route: 065

REACTIONS (29)
  - Near death experience [Unknown]
  - Muscle spasms [Not Recovered/Not Resolved]
  - Restlessness [Recovering/Resolving]
  - On and off phenomenon [Not Recovered/Not Resolved]
  - Device issue [Not Recovered/Not Resolved]
  - Muscular weakness [Not Recovered/Not Resolved]
  - Fatigue [Not Recovered/Not Resolved]
  - Limb discomfort [Not Recovered/Not Resolved]
  - Abnormal faeces [Recovering/Resolving]
  - Muscle rigidity [Not Recovered/Not Resolved]
  - Dyskinesia [Recovered/Resolved]
  - Gait disturbance [Not Recovered/Not Resolved]
  - Influenza [Not Recovered/Not Resolved]
  - Wrong technique in device usage process [Not Recovered/Not Resolved]
  - Therapeutic product effect incomplete [Not Recovered/Not Resolved]
  - Illness [Not Recovered/Not Resolved]
  - Nasopharyngitis [Not Recovered/Not Resolved]
  - Depressed mood [Not Recovered/Not Resolved]
  - Confusional state [Unknown]
  - Anxiety [Unknown]
  - Hallucination [Recovered/Resolved]
  - Catheter placement [Unknown]
  - Feeling abnormal [Not Recovered/Not Resolved]
  - Urinary tract infection [Unknown]
  - Intentional product misuse [Not Recovered/Not Resolved]
  - Incorrect product administration duration [Recovered/Resolved]
  - Malaise [Recovering/Resolving]
  - Therapeutic product effect decreased [Not Recovered/Not Resolved]
  - Unevaluable event [Recovering/Resolving]

NARRATIVE: CASE EVENT DATE: 20230101
